FAERS Safety Report 13019796 (Version 1)
Quarter: 2016Q4

REPORT INFORMATION
  Report Type: Spontaneous
  Country: US (occurrence: US)
  Receive Date: 20161212
  Receipt Date: 20161212
  Transmission Date: 20170207
  Serious: No
  Sender: FDA-Public Use
  Company Number: US-ROCHE-1835231

PATIENT
  Sex: Female

DRUGS (16)
  1. METHOTREXATE. [Concomitant]
     Active Substance: METHOTREXATE
     Indication: RHEUMATOID ARTHRITIS
     Dosage: 9 TABLETS OF 2.5MG ONCE A WEEK
     Route: 065
  2. FENTANYL. [Concomitant]
     Active Substance: FENTANYL
     Indication: PAIN
     Dosage: 50 MCG PATCH CHANGE EVERY 2 DAYS
     Route: 065
  3. VICODIN ES [Concomitant]
     Active Substance: ACETAMINOPHEN\HYDROCODONE BITARTRATE
     Indication: PAIN
     Dosage: 750 MG AS NEEDED
     Route: 065
  4. PRILOSEC [Concomitant]
     Active Substance: OMEPRAZOLE MAGNESIUM
     Indication: GASTROOESOPHAGEAL REFLUX DISEASE
  5. VALIUM [Concomitant]
     Active Substance: DIAZEPAM
     Dosage: 10 MG TABLET
     Route: 065
  6. PROZAC [Concomitant]
     Active Substance: FLUOXETINE HYDROCHLORIDE
     Indication: DEPRESSION
     Dosage: 20 MG TWICE A DAY
     Route: 065
  7. FIORINAL (UNITED STATES) [Concomitant]
     Indication: HEADACHE
  8. TESTOSTERONE CREAM [Concomitant]
     Active Substance: TESTOSTERONE
     Indication: MENOPAUSE
     Dosage: 2.5 MG ON LEG NIGHTLY
     Route: 065
  9. PROMETRIUM (UNITED STATES) [Concomitant]
     Indication: MENOPAUSE
     Dosage: 200MG AT NIGHT
     Route: 065
  10. FOLIC ACID. [Concomitant]
     Active Substance: FOLIC ACID
  11. ZOVIRAX [Concomitant]
     Active Substance: ACYCLOVIR
     Indication: HERPES VIRUS INFECTION
     Dosage: 400 MG ONCE A DAY
     Route: 065
  12. REGLAN [Concomitant]
     Active Substance: METOCLOPRAMIDE HYDROCHLORIDE
     Indication: NAUSEA
     Dosage: 10 MG TABLET AS NEEDED
     Route: 065
  13. DIFLUCAN [Concomitant]
     Active Substance: FLUCONAZOLE
     Indication: FUNGAL INFECTION
     Dosage: 100 MG WHEN TAKE WITH METHOTREXATE
     Route: 065
  14. ACTEMRA [Suspect]
     Active Substance: TOCILIZUMAB
     Indication: RHEUMATOID ARTHRITIS
     Route: 058
     Dates: start: 201606, end: 201609
  15. VITAMIN B12 [Concomitant]
     Active Substance: CYANOCOBALAMIN
     Dosage: ONCE A MONTH
     Route: 065
  16. MEDROL [Concomitant]
     Active Substance: METHYLPREDNISOLONE
     Indication: RHEUMATOID ARTHRITIS
     Dosage: 4 MG ONCE A DAY
     Route: 065

REACTIONS (2)
  - Urinary tract infection [Unknown]
  - Aphonia [Unknown]
